FAERS Safety Report 5048528-8 (Version None)
Quarter: 2006Q3

REPORT INFORMATION
  Report Type: 
  Country: None (occurrence: None)
  Receive Date: 20060705
  Receipt Date: 20060619
  Transmission Date: 20061208
  Serious: Yes (Death)
  Sender: FDA-Public Use
  Company Number: GBR-2005-0001758

PATIENT
  Age: 77 Year
  Sex: Male

DRUGS (22)
  1. OXYCODONE HCL [Suspect]
     Dosage: 20 MG, BID
  2. METOCLOPRAMIDE [Suspect]
     Dosage: 10 MG, TID
  3. DILTIAZEM HCL [Suspect]
     Dosage: 60 MG, BID
  4. COMBIVENT [Suspect]
     Indication: CHRONIC OBSTRUCTIVE PULMONARY DISEASE
     Dosage: QID, INHALATION
     Route: 055
     Dates: start: 20030617, end: 20040513
  5. SPIRIVA (TIOTROPIUM BROMIDE) CAPSULE [Suspect]
     Indication: CHRONIC OBSTRUCTIVE PULMONARY DISEASE
     Dosage: 18 MCG, DAILY, INHALATION
     Route: 055
     Dates: start: 20030617, end: 20040513
  6. SALBUTAMOL (SALBUTAMOL) [Suspect]
     Dosage: 100 MCG, BID, PRN, INHALATION
     Route: 055
  7. ASPIRIN [Suspect]
     Dosage: 75 MG, DAILY
  8. ATORVASTATIN CALCIUM [Suspect]
     Dosage: 10 MG, DAILY
  9. BECLOMETHASONE DIPROPIONATE [Suspect]
     Dosage: 100 MCG, BID, INHALATION
     Route: 055
  10. FRUMIL (AMILORIDE HYDROCHLORIDE, FUROSEMIDE) [Suspect]
  11. DEXAMETHASONE [Suspect]
     Dosage: 2 MG, DAILY
  12. DOSULEPIN (DOSULEPIN) [Suspect]
     Dosage: 75.MG, NOCTE
  13. FUROSEMIDE [Suspect]
     Dosage: 13.80 MG, DAILY
  14. GAVISCON [Suspect]
     Dosage: 10 ML, QID
  15. LACTULOSE [Suspect]
     Dosage: 3.35G/5ML
  16. LANSOPRAZOLE [Suspect]
     Dosage: 30 MG, DAILY
  17. NITROLINGUAL (GLYCERYL TRINITRATE) [Suspect]
     Dosage: 400 MG, DAILY
  18. NOZINAN (LEVOMEPROMAZINE) [Suspect]
     Dosage: 25 MG, QID
  19. OXYGEN (OXYGEN) [Suspect]
     Dosage: INHALATION
     Route: 055
  20. SPIRONOLACTONE [Suspect]
     Dosage: 50 MG, DAILY
  21. SYMBICORT (FORMOTEROL) [Suspect]
     Dosage: 1-2 PUFF, BID, INHALATION
     Route: 055
  22. TEMAZEPAM [Suspect]
     Dosage: 1-2 AT NIGHT

REACTIONS (1)
  - MESOTHELIOMA [None]
